FAERS Safety Report 25884981 (Version 1)
Quarter: 2025Q4

REPORT INFORMATION
  Report Type: Spontaneous
  Country: US (occurrence: None)
  Receive Date: 20251003
  Receipt Date: 20251003
  Transmission Date: 20260117
  Serious: Yes (Death)
  Sender: FDA-CTU
  Company Number: None

PATIENT
  Age: 71 Year
  Sex: Female

DRUGS (9)
  1. COLLAGENASE SANTYL [Suspect]
     Active Substance: COLLAGENASE CLOSTRIDIUM HISTOLYTICUM
  2. ASPIRIN 81 MG EC LOW DOSE TABLETS [Concomitant]
  3. ATORVASTATIN CALCIUM [Concomitant]
     Active Substance: ATORVASTATIN CALCIUM
  4. CLOPIDOGREL [Concomitant]
     Active Substance: CLOPIDOGREL BISULFATE
  5. GABAPENTIN [Concomitant]
     Active Substance: GABAPENTIN
  6. PANTOPRAZOLE [Concomitant]
     Active Substance: PANTOPRAZOLE
  7. TRAZODONE [Concomitant]
     Active Substance: TRAZODONE HYDROCHLORIDE
  8. SENNA-S 8.6MG-50MG TABLETS [Concomitant]
  9. SANTYL 250U/GM OINTMENT 30GM [Concomitant]
     Indication: Debridement
     Dosage: FREQUENCY : DAILY;?
     Route: 061
     Dates: start: 20250602

REACTIONS (1)
  - Death [None]

NARRATIVE: CASE EVENT DATE: 20250919
